FAERS Safety Report 22097540 (Version 1)
Quarter: 2023Q1

REPORT INFORMATION
  Report Type: Spontaneous
  Country: US (occurrence: None)
  Receive Date: 20230315
  Receipt Date: 20230315
  Transmission Date: 20230417
  Serious: No
  Sender: FDA-Public Use
  Company Number: 2023A041204

PATIENT
  Sex: Female
  Weight: 95.3 kg

DRUGS (1)
  1. BUDESONIDE\FORMOTEROL [Suspect]
     Active Substance: BUDESONIDE\FORMOTEROL
     Route: 055
     Dates: start: 202208

REACTIONS (3)
  - General physical health deterioration [Unknown]
  - Product dose omission issue [Unknown]
  - Incorrect dose administered by device [Unknown]
